FAERS Safety Report 8564806-X (Version None)
Quarter: 2012Q3

REPORT INFORMATION
  Report Type: 
  Country: None (occurrence: None)
  Receive Date: 20120723
  Receipt Date: 20120717
  Transmission Date: 20120928
  Serious: Yes (Hospitalization)
  Sender: FDA-Public Use
  Company Number: US-2012-10951

PATIENT
  Age: 2 Year
  Sex: Female

DRUGS (5)
  1. CYCLOPHOSPHAMIDE [Suspect]
     Indication: STEM CELL TRANSPLANT
     Dosage: 200 MG/KG, INTRAVENOUS
     Route: 042
  2. CYCLOSPORINE [Concomitant]
  3. BUSULFEX [Suspect]
     Indication: STEM CELL TRANSPLANT
     Dosage: 16 MG/KG, INTRAVENOUS
     Route: 042
  4. METHYLPREDNISOLONE [Concomitant]
  5. ANTI-THYMOCYTE GLOBULIN NOS [Suspect]
     Indication: STEM CELL TRANSPLANT
     Dosage: 90 MG/KG, INTRAVENOUS
     Route: 042

REACTIONS (11)
  - MULTI-ORGAN FAILURE [None]
  - RESPIRATORY FAILURE [None]
  - POSTERIOR REVERSIBLE ENCEPHALOPATHY SYNDROME [None]
  - LEUKAEMIA RECURRENT [None]
  - GRAND MAL CONVULSION [None]
  - RENAL FAILURE [None]
  - HYPERTENSION [None]
  - HAEMOGLOBIN DECREASED [None]
  - FLUID OVERLOAD [None]
  - RESPIROVIRUS TEST POSITIVE [None]
  - THROMBOTIC MICROANGIOPATHY [None]
